FAERS Safety Report 13643513 (Version 1)
Quarter: 2017Q2

REPORT INFORMATION
  Report Type: Spontaneous
  Country: FR (occurrence: FR)
  Receive Date: 20170612
  Receipt Date: 20170612
  Transmission Date: 20170830
  Serious: Yes (Other)
  Sender: FDA-Public Use
  Company Number: FR-BAYER-2017-105845

PATIENT
  Age: 45 Year
  Sex: Female

DRUGS (1)
  1. MIRENA [Suspect]
     Active Substance: LEVONORGESTREL
     Dosage: 20 MCG/24HR, CONT
     Route: 015
     Dates: start: 20101120, end: 20151220

REACTIONS (13)
  - Mood swings [Unknown]
  - Breast pain [Unknown]
  - Headache [Unknown]
  - Sleep disorder [Unknown]
  - Adrenal disorder [Unknown]
  - Visual acuity reduced [Unknown]
  - Diffuse alopecia [Unknown]
  - Palpitations [Unknown]
  - Depressed mood [Unknown]
  - Ovarian cyst [Unknown]
  - Thyroid disorder [Unknown]
  - Urinary tract infection [Unknown]
  - Acne [Unknown]

NARRATIVE: CASE EVENT DATE: 20101120
